FAERS Safety Report 12339455 (Version 1)
Quarter: 2016Q2

REPORT INFORMATION
  Report Type: Spontaneous
  Country: US (occurrence: US)
  Receive Date: 20160505
  Receipt Date: 20160505
  Transmission Date: 20160815
  Serious: No
  Sender: FDA-Public Use
  Company Number: US-AMGEN-USASP2015126596

PATIENT
  Age: 75 Year
  Sex: Male
  Weight: 62.5 kg

DRUGS (5)
  1. HECTOROL [Concomitant]
     Active Substance: DOXERCALCIFEROL
     Indication: HYPERPARATHYROIDISM
     Dosage: 3 MUG, Q3WK
     Route: 042
     Dates: start: 20150819
  2. ARANESP [Suspect]
     Active Substance: DARBEPOETIN ALFA
     Indication: ANAEMIA
     Dosage: 60 MUG, QWK
     Route: 042
     Dates: start: 20150914, end: 20151012
  3. VENOFER [Concomitant]
     Active Substance: IRON SUCROSE
     Indication: IRON DEFICIENCY
     Dosage: 50 MG, QWK
     Dates: start: 20150923
  4. HEPARIN [Concomitant]
     Active Substance: HEPARIN SODIUM
  5. ARANESP [Suspect]
     Active Substance: DARBEPOETIN ALFA
     Dosage: 40 MUG, QWK
     Route: 042
     Dates: start: 20150921, end: 20151012

REACTIONS (2)
  - Pain in extremity [Recovered/Resolved]
  - Musculoskeletal pain [Recovered/Resolved]

NARRATIVE: CASE EVENT DATE: 20150914
